FAERS Safety Report 22616451 (Version 1)
Quarter: 2023Q2

REPORT INFORMATION
  Report Type: Spontaneous
  Country: RO (occurrence: None)
  Receive Date: 20230619
  Receipt Date: 20230619
  Transmission Date: 20230721
  Serious: Yes (Life-Threatening, Hospitalization, Other)
  Sender: FDA-Public Use
  Company Number: 2023A140521

PATIENT

DRUGS (9)
  1. SYMBICORT [Suspect]
     Active Substance: BUDESONIDE\FORMOTEROL FUMARATE DIHYDRATE
     Indication: Chronic obstructive pulmonary disease
     Dosage: 320 MG EVERY 12 HOURS
     Route: 055
  2. TIOTROPIUM [Concomitant]
     Active Substance: TIOTROPIUM
  3. THEOPHYLLINE ANHYDROUS [Concomitant]
     Active Substance: THEOPHYLLINE ANHYDROUS
  4. SPIRIVA [Concomitant]
     Active Substance: TIOTROPIUM BROMIDE MONOHYDRATE
  5. ERDOSTEINE [Concomitant]
     Active Substance: ERDOSTEINE
  6. ELIQUIS [Concomitant]
     Active Substance: APIXABAN
  7. FAMOTIDINE [Concomitant]
     Active Substance: FAMOTIDINE
  8. SILIMARINE [Concomitant]
  9. FENILBUTSONE [Concomitant]

REACTIONS (8)
  - Dyspnoea [Unknown]
  - Infection [Unknown]
  - COVID-19 [Recovered/Resolved]
  - Productive cough [Unknown]
  - Asthenia [Unknown]
  - Neck pain [Unknown]
  - Pulmonary fibrosis [Unknown]
  - Obstructive airways disorder [Unknown]
